FAERS Safety Report 5315913-6 (Version None)
Quarter: 2007Q1

REPORT INFORMATION
  Report Type: 
  Country: None (occurrence: None)
  Receive Date: 20070130
  Receipt Date: 20061106
  Transmission Date: 20070707
  Serious: No
  Sender: FDA-Public Use
  Company Number: 200619106US

PATIENT
  Age: 19 Year
  Sex: Female

DRUGS (8)
  1. KETEK [Suspect]
     Dosage: QD
     Dates: start: 20061027, end: 20061101
  2. EXPECTORANT [Concomitant]
  3. ASCORBIC ACID (VITAMIN C) [Concomitant]
  4. IBUPROFEN [Concomitant]
  5. GUAIFENESIN [Concomitant]
  6. PARACETAMOL,GUAIFENESIN, DEXTROMETHORPHAN HYDROBROMIDE, PSEUDOEPHIDRIN [Concomitant]
  7. DEXTROMETHORPHAN HYDROBROMIDE [Concomitant]
  8. .. [Concomitant]

REACTIONS (4)
  - ABDOMINAL PAIN UPPER [None]
  - DRUG INEFFECTIVE [None]
  - DYSPNOEA [None]
  - PHARYNGITIS STREPTOCOCCAL [None]
